FAERS Safety Report 7535878-6 (Version None)
Quarter: 2011Q2

REPORT INFORMATION
  Report Type: 
  Country: None (occurrence: None)
  Receive Date: 20110602
  Receipt Date: 20110521
  Transmission Date: 20111010
  Serious: Yes (Hospitalization)
  Sender: FDA-Public Use
  Company Number: 2011AP001048

PATIENT
  Age: 57 Year
  Sex: Male
  Weight: 73 kg

DRUGS (14)
  1. TACROLIMUS [Suspect]
     Indication: IMMUNOSUPPRESSANT DRUG THERAPY
     Dosage: 3 MG; Q12H;, 5 MG; Q12H;, 8 MG; Q12H;, 11 MG; Q12H;, 13 MG; Q12H;, 15 MG; Q12H;
  2. EZETIMIBE [Concomitant]
  3. BASILIXIMAB [Concomitant]
  4. PREDNISONE [Concomitant]
  5. OMEPRAZOLE [Concomitant]
  6. FINASTERIDE [Concomitant]
  7. TAMSULOSIN HCL [Concomitant]
  8. METHYLPREDNISOLONE [Concomitant]
  9. CARBAMAZEPINE [Suspect]
     Indication: CONVULSION
     Dosage: 400 MG; BID;
  10. PHENOBARBITAL TAB [Suspect]
     Indication: CONVULSION
     Dosage: 64.8 MG; BID;, 32.4 MG; BID;, 16.2 MG; BID;
  11. WARFARIN SODIUM [Concomitant]
  12. MYCOPHENOLATE MEFETIL [Concomitant]
  13. SIMVASTATIN [Concomitant]
  14. FOLIC ACID [Concomitant]

REACTIONS (10)
  - ORTHOSTATIC HYPOTENSION [None]
  - ANXIETY [None]
  - VOMITING [None]
  - IMMUNOSUPPRESSANT DRUG LEVEL DECREASED [None]
  - NAUSEA [None]
  - KIDNEY TRANSPLANT REJECTION [None]
  - ANTICONVULSANT DRUG LEVEL BELOW THERAPEUTIC [None]
  - DRUG INTERACTION [None]
  - DIZZINESS [None]
  - TREMOR [None]
